FAERS Safety Report 12613347 (Version 1)
Quarter: 2016Q3

REPORT INFORMATION
  Report Type: Spontaneous
  Country: US (occurrence: None)
  Receive Date: 20160801
  Receipt Date: 20160801
  Transmission Date: 20161109
  Serious: No
  Sender: FDA-Public Use
  Company Number: None

PATIENT
  Age: 66 Year
  Sex: Female
  Weight: 113.85 kg

DRUGS (10)
  1. GRALISE [Suspect]
     Active Substance: GABAPENTIN
     Indication: NEURALGIA
     Route: 048
     Dates: start: 20160728, end: 20160731
  2. AMITRIPTYLINE [Concomitant]
     Active Substance: AMITRIPTYLINE
  3. VITAMIN B12 [Concomitant]
     Active Substance: CYANOCOBALAMIN
  4. LORAZEPAM. [Concomitant]
     Active Substance: LORAZEPAM
  5. D-3 [Concomitant]
     Active Substance: CHOLECALCIFEROL
  6. L-THYROXINE [Concomitant]
     Active Substance: LEVOTHYROXINE
  7. MUCINEX DM [Concomitant]
     Active Substance: DEXTROMETHORPHAN HYDROBROMIDE\GUAIFENESIN
  8. EFFEXOR [Concomitant]
     Active Substance: VENLAFAXINE HYDROCHLORIDE
  9. CENTRUM SILVER VITAMINS [Concomitant]
  10. BIOTIN [Concomitant]
     Active Substance: BIOTIN

REACTIONS (1)
  - Dizziness [None]

NARRATIVE: CASE EVENT DATE: 20160729
